FAERS Safety Report 24685801 (Version 1)
Quarter: 2024Q4

REPORT INFORMATION
  Report Type: Spontaneous
  Country: US (occurrence: None)
  Receive Date: 20241129
  Receipt Date: 20241129
  Transmission Date: 20250114
  Serious: Yes (Hospitalization)
  Sender: Public
  Company Number: None

PATIENT
  Sex: Female

DRUGS (11)
  1. LENALIDOMIDE [Suspect]
     Active Substance: LENALIDOMIDE
     Indication: Myelofibrosis
     Dosage: OTHER FREQUENCY : 21DAYSSTOPFOR7DAYS;?
     Route: 048
     Dates: start: 20240730
  2. ACETAMINOPHE TAB 650MG ER [Concomitant]
  3. ALBUTEROL AER HFA [Concomitant]
  4. CEFTRIAXONE INJ 10GM [Concomitant]
  5. EPOGEN INJ 20000/ML [Concomitant]
  6. FERROUS SULF TAB 325MG [Concomitant]
  7. JAKAFI [Concomitant]
     Active Substance: RUXOLITINIB
  8. JAKAFI TAB 10MG [Concomitant]
  9. LANCETS MIS THIN [Concomitant]
  10. RETACRIT INJ 4000UNIT [Concomitant]
  11. TRAMADOL HCL TAB 50MG [Concomitant]

REACTIONS (1)
  - Infection [None]
